FAERS Safety Report 7336188-2 (Version None)
Quarter: 2011Q1

REPORT INFORMATION
  Report Type: 
  Country: None (occurrence: None)
  Receive Date: 20110302
  Receipt Date: 20110302
  Transmission Date: 20110831
  Serious: Yes (Other)
  Sender: FDA-Public Use
  Company Number: None

PATIENT
  Age: 56 Year
  Sex: Female
  Weight: 68.9467 kg

DRUGS (1)
  1. FENTANYL TRANSDERMAL SYSTEM 75MCG/H WATSON [Suspect]
     Indication: SCIATICA
     Dosage: 75 MCG/H EVERY 72 HOURS TRANSDERMAL
     Route: 062
     Dates: start: 20110216, end: 20110219

REACTIONS (8)
  - DYSPEPSIA [None]
  - HEADACHE [None]
  - DIZZINESS [None]
  - IMPAIRED DRIVING ABILITY [None]
  - CHEST PAIN [None]
  - FATIGUE [None]
  - DIARRHOEA [None]
  - NAUSEA [None]
